FAERS Safety Report 5060273-1 (Version None)
Quarter: 2006Q3

REPORT INFORMATION
  Report Type: 
  Country: None (occurrence: None)
  Receive Date: 20060720
  Receipt Date: 20060711
  Transmission Date: 20061208
  Serious: Yes (Hospitalization)
  Sender: FDA-Public Use
  Company Number: 2006-02877

PATIENT
  Age: 32 Year
  Sex: Female

DRUGS (3)
  1. TRELSTAR DEPOT [Suspect]
     Indication: INFERTILITY
     Dosage: 3 MG, 1 IN 28D, INTRAMUSCULAR
     Route: 030
     Dates: start: 20060408, end: 20060512
  2. GONAL-F [Suspect]
     Indication: OVARIAN DISORDER
     Dosage: 150 IU, 1 IN 1 D, SUBCUTANEOUS
     Route: 058
     Dates: start: 20060505, end: 20060512
  3. OVITRELLE (CHORIOGONADOTROPIN ALFA) [Suspect]
     Indication: OVARIAN DISORDER
     Dosage: 2 DOSAGE FORMS, SUBCUTANEOUS
     Route: 058
     Dates: start: 20060514, end: 20060514

REACTIONS (1)
  - HEPATIC ENZYME INCREASED [None]
